FAERS Safety Report 6861116-3 (Version None)
Quarter: 2010Q3

REPORT INFORMATION
  Report Type: 
  Country: None (occurrence: None)
  Receive Date: 20100720
  Receipt Date: 20100709
  Transmission Date: 20110219
  Serious: No
  Sender: FDA-Public Use
  Company Number: US-JNJFOC-20100703738

PATIENT
  Sex: Female
  Weight: 81.65 kg

DRUGS (11)
  1. SANDOZ FENTANYL TRANSDERMAL SYSTEM [Suspect]
     Indication: BACK PAIN
     Route: 062
  2. SINGULAIR [Concomitant]
     Indication: PRODUCT USED FOR UNKNOWN INDICATION
     Route: 055
  3. LASIX [Concomitant]
     Indication: DIURETIC THERAPY
     Route: 048
  4. BACLOFEN [Concomitant]
     Indication: MUSCLE RELAXANT THERAPY
     Route: 048
  5. FLOIC ACID [Concomitant]
  6. COREG [Concomitant]
     Indication: BLOOD PRESSURE
     Route: 048
  7. NEURONTIN [Concomitant]
     Route: 048
  8. COLACE [Concomitant]
     Indication: ABNORMAL FAECES
     Route: 048
  9. MICRONASE [Concomitant]
     Indication: DIABETES MELLITUS
     Route: 048
  10. ASPIRIN [Concomitant]
     Route: 048
  11. CALCITONIN [Concomitant]
     Indication: OSTEOPOROSIS
     Route: 045

REACTIONS (4)
  - DRUG DOSE OMISSION [None]
  - OEDEMA PERIPHERAL [None]
  - SKIN DISORDER [None]
  - WRONG TECHNIQUE IN DRUG USAGE PROCESS [None]
